FAERS Safety Report 11920949 (Version 1)
Quarter: 2016Q1

REPORT INFORMATION
  Report Type: Spontaneous
  Country: US (occurrence: US)
  Receive Date: 20160115
  Receipt Date: 20160115
  Transmission Date: 20160526
  Serious: No
  Sender: FDA-Public Use
  Company Number: US-ASTELLAS-2015US043673

PATIENT
  Age: 85 Year
  Sex: Male

DRUGS (1)
  1. MYRBETRIQ [Suspect]
     Active Substance: MIRABEGRON
     Indication: PRODUCT USED FOR UNKNOWN INDICATION
     Route: 065
     Dates: start: 201510

REACTIONS (7)
  - Dry throat [Recovering/Resolving]
  - Malaise [Recovering/Resolving]
  - Thirst [Recovering/Resolving]
  - Food interaction [Recovering/Resolving]
  - Drug effect incomplete [Recovering/Resolving]
  - Gastric disorder [Unknown]
  - Middle insomnia [Recovering/Resolving]

NARRATIVE: CASE EVENT DATE: 201511
